FAERS Safety Report 4833328-1 (Version None)
Quarter: 2005Q4

REPORT INFORMATION
  Report Type: 
  Country: None (occurrence: None)
  Receive Date: 20051117
  Receipt Date: 20051104
  Transmission Date: 20060501
  Serious: Yes (Death, Hospitalization)
  Sender: FDA-Public Use
  Company Number: 2005136579

PATIENT
  Age: 75 Year
  Sex: Male
  Weight: 61 kg

DRUGS (17)
  1. VFEND [Suspect]
     Indication: CANDIDIASIS
     Dosage: 400 MG (DAILY), ORAL
     Route: 048
     Dates: start: 20050818, end: 20050922
  2. AMLODIPINE [Suspect]
     Indication: ESSENTIAL HYPERTENSION
     Dosage: 5 MG (2 IN 1 D), ORAL
     Route: 048
  3. POTASSIUM CHLORIDE [Suspect]
     Indication: ILL-DEFINED DISORDER
     Dosage: SEE IMAGE
     Route: 048
     Dates: start: 20050914, end: 20050914
  4. POTASSIUM CHLORIDE [Suspect]
     Indication: ILL-DEFINED DISORDER
     Dosage: SEE IMAGE
     Route: 048
     Dates: start: 20050916, end: 20050916
  5. POTASSIUM CHLORIDE [Suspect]
     Indication: ILL-DEFINED DISORDER
     Dosage: SEE IMAGE
     Route: 048
     Dates: start: 20050917, end: 20050918
  6. RAMIPRIL [Suspect]
     Indication: ESSENTIAL HYPERTENSION
     Dosage: 5 MG (5 MG, 1 IN 1 D), ORAL
     Route: 048
  7. METOPROLOL TARTRATE [Suspect]
     Indication: ATRIAL FIBRILLATION
     Dosage: 100 MG (50 MG, 2 IN 1 D), ORAL
     Route: 048
  8. NEXIUM [Suspect]
     Indication: ILL-DEFINED DISORDER
     Dosage: 40 MG (DAILY), ORAL
     Route: 048
  9. COUMADIN [Concomitant]
  10. DOXAZOSIN (DOXAZOSIN) [Concomitant]
  11. MAGNESIUM CARBONATE (MAGNESIUM CARBONATE) [Concomitant]
  12. GENTAMICIN [Concomitant]
  13. AMOXICILLIN SODIUM (AMOXICILLIN SODIUM) [Concomitant]
  14. ZOCOR [Concomitant]
  15. PREVISCAN (FLUINDIONE) [Concomitant]
  16. FERROUS SULFATE TAB [Concomitant]
  17. FUROSEMIDE [Concomitant]

REACTIONS (12)
  - AGITATION [None]
  - APALLIC SYNDROME [None]
  - CARDIAC ARREST [None]
  - CONFUSIONAL STATE [None]
  - ELECTROCARDIOGRAM QRS COMPLEX PROLONGED [None]
  - ESSENTIAL HYPERTENSION [None]
  - HAEMODIALYSIS [None]
  - HAEMODYNAMIC INSTABILITY [None]
  - POST PROCEDURAL COMPLICATION [None]
  - RENAL FAILURE ACUTE [None]
  - RESPIRATORY ARREST [None]
  - TACHYCARDIA [None]
